FAERS Safety Report 17593430 (Version 1)
Quarter: 2020Q1

REPORT INFORMATION
  Report Type: Spontaneous
  Country: US (occurrence: US)
  Receive Date: 20200327
  Receipt Date: 20200327
  Transmission Date: 20200409
  Serious: No
  Sender: FDA-Public Use
  Company Number: US-TOPROL ACQUISITION LLC-2019-TOP-001430

PATIENT
  Sex: Female
  Weight: 82.99 kg

DRUGS (4)
  1. METOPROLOL SUCCINATE. [Suspect]
     Active Substance: METOPROLOL SUCCINATE
     Indication: CARDIOMYOPATHY
     Dosage: 25 MG, QD
  2. METOPROLOL SUCCINATE. [Suspect]
     Active Substance: METOPROLOL SUCCINATE
     Dosage: 25 MG, QD
     Dates: start: 20191115
  3. TOPROL XL [Suspect]
     Active Substance: METOPROLOL SUCCINATE
     Indication: CARDIOMYOPATHY
     Dosage: 25 MG, QD
  4. TIKOSYN [Concomitant]
     Active Substance: DOFETILIDE
     Indication: PRODUCT USED FOR UNKNOWN INDICATION

REACTIONS (5)
  - Heart rate abnormal [Unknown]
  - Off label use [Unknown]
  - Hypersensitivity [Unknown]
  - Hypotension [Unknown]
  - Product substitution issue [Unknown]
